FAERS Safety Report 6103984-9 (Version None)
Quarter: 2009Q1

REPORT INFORMATION
  Report Type: 
  Country: None (occurrence: None)
  Receive Date: 20090305
  Receipt Date: 20090127
  Transmission Date: 20090719
  Serious: No
  Sender: FDA-Public Use
  Company Number: US-MERCK-0901USA03050

PATIENT
  Age: 71 Year
  Sex: Male

DRUGS (1)
  1. ZETIA [Suspect]
     Route: 048

REACTIONS (1)
  - NEOPLASM [None]
